FAERS Safety Report 8849803 (Version 1)
Quarter: 2012Q4

REPORT INFORMATION
  Report Type: 
  Country: US (occurrence: US)
  Receive Date: 20121019
  Receipt Date: 20121019
  Transmission Date: 20130627
  Serious: Yes (Death)
  Sender: FDA-Public Use
  Company Number: US-JNJFOC-20121010557

PATIENT
  Sex: Male
  Weight: 167.83 kg

DRUGS (2)
  1. REOPRO [Suspect]
     Indication: ACUTE MYOCARDIAL INFARCTION
     Dosage: 10 mg/5ml, 5 ml 1 vial AM
     Route: 065
  2. EFFIENT [Suspect]
     Indication: ACUTE MYOCARDIAL INFARCTION
     Dosage: 1 dose; 10 mg bulk; started 2 years ago
     Route: 048

REACTIONS (1)
  - Death [Fatal]
